FAERS Safety Report 13004815 (Version 2)
Quarter: 2016Q4

REPORT INFORMATION
  Report Type: Report from Study
  Country: None (occurrence: US)
  Receive Date: 20161207
  Receipt Date: 20161223
  Transmission Date: 20170207
  Serious: Yes (Other)
  Sender: FDA-Public Use
  Company Number: US-ABBVIE-16K-163-1798458-00

PATIENT
  Sex: Female

DRUGS (1)
  1. HUMIRA [Suspect]
     Active Substance: ADALIMUMAB
     Indication: RHEUMATOID ARTHRITIS
     Route: 058

REACTIONS (5)
  - Post procedural haemorrhage [Recovering/Resolving]
  - Post procedural swelling [Recovering/Resolving]
  - Eye operation complication [Recovering/Resolving]
  - Retinal detachment [Recovering/Resolving]
  - Ocular hyperaemia [Recovering/Resolving]
